FAERS Safety Report 19408115 (Version 1)
Quarter: 2021Q2

REPORT INFORMATION
  Report Type: Spontaneous
  Country: GB (occurrence: GB)
  Receive Date: 20210611
  Receipt Date: 20210611
  Transmission Date: 20210717
  Serious: Yes (Hospitalization, Disabling, Other)
  Sender: FDA-Public Use
  Company Number: GB-TAKEDA-2021TJP037543

PATIENT
  Age: 41 Year
  Sex: Male
  Weight: 96.16 kg

DRUGS (3)
  1. LANSOPRAZOLE. [Suspect]
     Active Substance: LANSOPRAZOLE
     Indication: GASTROOESOPHAGEAL REFLUX DISEASE
  2. LANSOPRAZOLE. [Suspect]
     Active Substance: LANSOPRAZOLE
     Indication: ILL-DEFINED DISORDER
     Dosage: 30 MILLIGRAM
     Route: 048
     Dates: start: 20170601, end: 20210523
  3. LANSOPRAZOLE. [Suspect]
     Active Substance: LANSOPRAZOLE
     Indication: GASTROOESOPHAGEAL REFLUX DISEASE

REACTIONS (24)
  - Chronic fatigue syndrome [Recovering/Resolving]
  - Pruritus [Recovered/Resolved]
  - Dyspnoea [Recovered/Resolved with Sequelae]
  - Cough [Recovered/Resolved]
  - Abdominal pain upper [Recovering/Resolving]
  - Mood swings [Recovering/Resolving]
  - Heart rate increased [Recovering/Resolving]
  - Vomiting [Recovered/Resolved with Sequelae]
  - Palpitations [Recovered/Resolved]
  - Pleuritic pain [Recovering/Resolving]
  - Bowel movement irregularity [Recovered/Resolved]
  - Wheezing [Recovering/Resolving]
  - Lung disorder [Recovering/Resolving]
  - Muscle spasms [Recovered/Resolved]
  - Throat irritation [Recovering/Resolving]
  - Sleep disorder [Recovered/Resolved]
  - Photophobia [Recovered/Resolved]
  - Tinnitus [Not Recovered/Not Resolved]
  - Pulmonary congestion [Recovering/Resolving]
  - Suicidal ideation [Recovering/Resolving]
  - Pain [Recovering/Resolving]
  - Weight increased [Not Recovered/Not Resolved]
  - Back pain [Recovered/Resolved]
  - COVID-19 [Recovering/Resolving]

NARRATIVE: CASE EVENT DATE: 20180101
